FAERS Safety Report 15933623 (Version 2)
Quarter: 2019Q1

REPORT INFORMATION
  Report Type: Spontaneous
  Country: US (occurrence: US)
  Receive Date: 20190207
  Receipt Date: 20190219
  Transmission Date: 20190417
  Serious: Yes (Other)
  Sender: FDA-Public Use
  Company Number: US-ASTRAZENECA-2018SF65594

PATIENT
  Sex: Female

DRUGS (23)
  1. CLONAZEPAM. [Concomitant]
     Active Substance: CLONAZEPAM
  2. SYRINGE [Concomitant]
     Active Substance: DEVICE
  3. HYDROCODONE [Concomitant]
     Active Substance: HYDROCODONE
  4. CARVEDILOL. [Concomitant]
     Active Substance: CARVEDILOL
  5. METOCLOPRAMIDE. [Concomitant]
     Active Substance: METOCLOPRAMIDE
  6. METFORMIN [Concomitant]
     Active Substance: METFORMIN HYDROCHLORIDE
  7. AMLODIPINE [Concomitant]
     Active Substance: AMLODIPINE BESYLATE
  8. MUCINEX [Concomitant]
     Active Substance: GUAIFENESIN
  9. NEXIUM [Suspect]
     Active Substance: ESOMEPRAZOLE MAGNESIUM
     Route: 048
     Dates: start: 20150917
  10. LOSARTAN. [Concomitant]
     Active Substance: LOSARTAN
  11. HYDROCODONE [Concomitant]
     Active Substance: HYDROCODONE
  12. TRAZODONE [Concomitant]
     Active Substance: TRAZODONE HYDROCHLORIDE
  13. MELOXICAM. [Concomitant]
     Active Substance: MELOXICAM
  14. ASPIRIN. [Concomitant]
     Active Substance: ASPIRIN
  15. NEXIUM [Suspect]
     Active Substance: ESOMEPRAZOLE MAGNESIUM
     Route: 048
     Dates: start: 20130430
  16. MECLIZINE [Concomitant]
     Active Substance: MECLIZINE HYDROCHLORIDE
  17. RANEXA [Concomitant]
     Active Substance: RANOLAZINE
  18. LYRICA [Concomitant]
     Active Substance: PREGABALIN
  19. ATORVASTATIN [Concomitant]
     Active Substance: ATORVASTATIN
  20. EFFIENT [Concomitant]
     Active Substance: PRASUGREL HYDROCHLORIDE
  21. JANUVIA [Concomitant]
     Active Substance: SITAGLIPTIN PHOSPHATE
  22. QUINAPRIL. [Concomitant]
     Active Substance: QUINAPRIL
  23. GLIMEPIRIDE. [Concomitant]
     Active Substance: GLIMEPIRIDE

REACTIONS (4)
  - Chronic kidney disease [Unknown]
  - Renal failure [Unknown]
  - Rebound acid hypersecretion [Unknown]
  - Acute kidney injury [Unknown]
